FAERS Safety Report 5853090-3 (Version None)
Quarter: 2008Q3

REPORT INFORMATION
  Report Type: 
  Country: None (occurrence: None)
  Receive Date: 20080821
  Receipt Date: 20080811
  Transmission Date: 20090109
  Serious: Yes (Hospitalization, Other)
  Sender: FDA-Public Use
  Company Number: US-ELI_LILLY_AND_COMPANY-US200808000790

PATIENT
  Sex: Male

DRUGS (10)
  1. CYMBALTA [Suspect]
     Indication: BIPOLAR II DISORDER
     Dosage: 20 MG, DAILY (1/D)
     Route: 048
     Dates: start: 20080108, end: 20080210
  2. CYMBALTA [Suspect]
     Dosage: 30 MG, UNK
     Dates: start: 20080211, end: 20080311
  3. KLONOPIN [Concomitant]
     Indication: ANXIETY
     Dosage: 1 MG, AS NEEDED
  4. LAMICTAL [Concomitant]
     Indication: BIPOLAR II DISORDER
     Dosage: 25 MG, UNK
     Dates: start: 20080109, end: 20080101
  5. LAMICTAL [Concomitant]
     Dosage: 100 MG, UNK
     Dates: start: 20080101, end: 20080210
  6. LAMICTAL [Concomitant]
     Dosage: 200 MG, UNK
     Dates: start: 20080211, end: 20080101
  7. LAMICTAL [Concomitant]
     Dosage: 100 MG, UNK
     Dates: start: 20080101, end: 20080507
  8. LAMICTAL [Concomitant]
     Dosage: 300 MG, UNK
     Dates: start: 20080508
  9. AMBIEN [Concomitant]
     Indication: INSOMNIA
     Dosage: 12.5 MG, EACH EVENING
     Route: 048
  10. IMIPRAMINE PAMOATE [Concomitant]
     Dosage: 75 MG, UNK

REACTIONS (11)
  - ANXIETY [None]
  - HAEMATOCRIT DECREASED [None]
  - HAEMOGLOBIN DECREASED [None]
  - NEUROPATHY PERIPHERAL [None]
  - OVERDOSE [None]
  - PLATELET COUNT INCREASED [None]
  - RED BLOOD CELL COUNT DECREASED [None]
  - RENAL FAILURE ACUTE [None]
  - RHABDOMYOLYSIS [None]
  - SEXUAL DYSFUNCTION [None]
  - SUICIDAL IDEATION [None]
